FAERS Safety Report 11314892 (Version 7)
Quarter: 2016Q1

REPORT INFORMATION
  Report Type: Spontaneous
  Country: CA (occurrence: CA)
  Receive Date: 20150727
  Receipt Date: 20160224
  Transmission Date: 20160525
  Serious: Yes (Hospitalization, Other)
  Sender: FDA-Public Use
  Company Number: CA-TEVA-580566USA

PATIENT
  Age: 60 Year
  Sex: Female

DRUGS (11)
  1. PREDNISONE (MAH UNKNOWN) [Suspect]
     Active Substance: PREDNISONE
     Route: 065
  2. XELJANZ [Suspect]
     Active Substance: TOFACITINIB CITRATE
     Dosage: 5 MILLIGRAM DAILY;
     Route: 048
     Dates: start: 20151104
  3. FLUCONAZOLE. [Concomitant]
     Active Substance: FLUCONAZOLE
  4. XELJANZ [Suspect]
     Active Substance: TOFACITINIB CITRATE
     Dosage: 5 MILLIGRAM DAILY;
     Route: 048
     Dates: start: 20150727, end: 201510
  5. ARAVA [Suspect]
     Active Substance: LEFLUNOMIDE
     Route: 065
  6. INDOMETHACIN (MAH UNKNOWN) [Suspect]
     Active Substance: INDOMETHACIN
     Indication: PRODUCT USED FOR UNKNOWN INDICATION
     Route: 065
  7. PFIZER-METHOTREXATE [Suspect]
     Active Substance: METHOTREXATE
     Route: 048
  8. XELJANZ [Suspect]
     Active Substance: TOFACITINIB CITRATE
     Dosage: 10 MILLIGRAM DAILY;
  9. XELJANZ [Suspect]
     Active Substance: TOFACITINIB CITRATE
     Dosage: 10 MILLIGRAM DAILY;
     Route: 065
     Dates: start: 20140807
  10. XELJANZ [Suspect]
     Active Substance: TOFACITINIB CITRATE
     Dosage: 5 MILLIGRAM DAILY;
  11. PLAQUENIL [Suspect]
     Active Substance: HYDROXYCHLOROQUINE SULFATE
     Route: 065

REACTIONS (7)
  - Arthralgia [Recovered/Resolved]
  - Arthralgia [Recovered/Resolved]
  - Pelvic pain [Recovered/Resolved]
  - Sepsis [Unknown]
  - Renal failure [Unknown]
  - Back pain [Not Recovered/Not Resolved]
  - Infection [Recovered/Resolved]

NARRATIVE: CASE EVENT DATE: 201504
